FAERS Safety Report 9716701 (Version 1)
Quarter: 2013Q4

REPORT INFORMATION
  Report Type: Spontaneous
  Country: US (occurrence: US)
  Receive Date: 20131127
  Receipt Date: 20131127
  Transmission Date: 20140711
  Serious: No
  Sender: FDA-Public Use
  Company Number: US-ENDO PHARMACEUTICALS INC.-HYDR20130001

PATIENT
  Sex: Female

DRUGS (2)
  1. HYDROCORTISONE TABLETS 10MG [Suspect]
     Indication: ADRENAL INSUFFICIENCY
     Route: 048
     Dates: start: 20121227
  2. CORTEF [Concomitant]
     Indication: ADRENAL INSUFFICIENCY
     Dosage: UNKNOWN
     Route: 065

REACTIONS (2)
  - Headache [Not Recovered/Not Resolved]
  - Reaction to drug excipients [Not Recovered/Not Resolved]
